FAERS Safety Report 8428689-0 (Version None)
Quarter: 2012Q2

REPORT INFORMATION
  Report Type: 
  Country: None (occurrence: None)
  Receive Date: 20120323
  Receipt Date: 20110708
  Transmission Date: 20120825
  Serious: Yes (Disabling)
  Sender: FDA-Public Use
  Company Number: 163-21880-11071173

PATIENT
  Age: 69 Year
  Sex: Female
  Weight: 92.9874 kg

DRUGS (16)
  1. AMOXICILLIN [Concomitant]
  2. UNKNOWN MED FOR DECREASED WBC(ALL OTHER THERAPEUTIC PRODUCTS) [Concomitant]
  3. VITAMIN D [Concomitant]
  4. ASPIRIN [Concomitant]
  5. VITAMIN B12 [Concomitant]
  6. MONOPRIL [Concomitant]
  7. DEXAMETHASONE [Concomitant]
  8. PAIN MEDICATION (ANALGESICS) [Concomitant]
  9. TRIAMCINOLONE ACETONIDE [Concomitant]
  10. ACIPHEX [Concomitant]
  11. VELCADE [Concomitant]
  12. MAGNESIUM (MAGNESIUM) [Concomitant]
  13. ARANESP [Concomitant]
  14. LENALIDOMIDE [Suspect]
     Indication: MULTIPLE MYELOMA
     Dosage: 15 MG, DAILY X21 DAYS ON; 7 DAYS OFF, PO
     Route: 048
     Dates: start: 20100311, end: 20101201
  15. ACETAMINOPHEN [Concomitant]
  16. MYLANTA (MYLANTA) [Concomitant]

REACTIONS (2)
  - MULTIPLE MYELOMA [None]
  - NEOPLASM PROGRESSION [None]
